FAERS Safety Report 21362928 (Version 1)
Quarter: 2022Q3

REPORT INFORMATION
  Report Type: Other
  Country: CA (occurrence: CA)
  Receive Date: 20220922
  Receipt Date: 20220922
  Transmission Date: 20221027
  Serious: Yes (Death, Other)
  Sender: FDA-Public Use
  Company Number: CA-ASPEN-GLO2022CA005444

PATIENT

DRUGS (4)
  1. BUSULFAN [Suspect]
     Active Substance: BUSULFAN
     Indication: Bone marrow conditioning regimen
     Dosage: UNK
     Route: 065
  2. CYCLOPHOSPHAMIDE [Suspect]
     Active Substance: CYCLOPHOSPHAMIDE
     Indication: Bone marrow conditioning regimen
     Dosage: UNK
     Route: 065
  3. CYCLOSPORINE [Concomitant]
     Active Substance: CYCLOSPORINE
     Indication: Graft versus host disease
     Dosage: UNK
     Route: 065
  4. METHYLPREDNISOLONE [Concomitant]
     Active Substance: METHYLPREDNISOLONE
     Indication: Graft versus host disease
     Dosage: UNK
     Route: 065

REACTIONS (14)
  - Product use in unapproved indication [Fatal]
  - Death [Fatal]
  - Aspergillus infection [Fatal]
  - Bacteraemia [Fatal]
  - Coagulopathy [Fatal]
  - Cytomegalovirus urinary tract infection [Fatal]
  - Gastrointestinal haemorrhage [Fatal]
  - Pancytopenia [Fatal]
  - Pleural effusion [Fatal]
  - Pneumonia fungal [Fatal]
  - Pyrexia [Fatal]
  - Respiratory distress [Fatal]
  - Respiratory tract ulceration [Fatal]
  - Staphylococcal infection [Fatal]
